FAERS Safety Report 4930672-4 (Version None)
Quarter: 2006Q1

REPORT INFORMATION
  Report Type: 
  Country: None (occurrence: None)
  Receive Date: 20060227
  Receipt Date: 20060213
  Transmission Date: 20060701
  Serious: Yes (Life-Threatening, Other)
  Sender: FDA-Public Use
  Company Number: TRP-0656-2005

PATIENT
  Age: 36 Year
  Sex: Male
  Weight: 77.1115 kg

DRUGS (6)
  1. REBETOL [Suspect]
     Indication: HEPATITIS C
     Dosage: 600 MG BID PO
     Route: 048
     Dates: start: 20051028, end: 20051129
  2. PEG-INTRON [Suspect]
     Indication: HEPATITIS C
     Dosage: 150 MCG QWK SC
     Route: 058
     Dates: start: 20051028, end: 20051129
  3. CENTRUM [Concomitant]
  4. EXTRA STRENGTH TYLENOL [Concomitant]
  5. XANAX [Concomitant]
  6. ZOLOFT [Concomitant]

REACTIONS (8)
  - AGGRESSION [None]
  - ALCOHOLISM [None]
  - COPROLALIA [None]
  - DRUG ABUSER [None]
  - HALLUCINATION, VISUAL [None]
  - HOMICIDAL IDEATION [None]
  - SLEEP TALKING [None]
  - SUICIDAL IDEATION [None]
